FAERS Safety Report 5688692-0 (Version None)
Quarter: 2008Q1

REPORT INFORMATION
  Report Type: 
  Country: None (occurrence: None)
  Receive Date: 20080331
  Receipt Date: 20080325
  Transmission Date: 20080703
  Serious: Yes (Hospitalization, Other)
  Sender: FDA-Public Use
  Company Number: US-BAYER-200811536NA

PATIENT
  Age: 69 Year
  Sex: Female
  Weight: 83 kg

DRUGS (2)
  1. CAMPATH [Suspect]
     Indication: STEM CELL TRANSPLANT
     Dosage: TOTAL DAILY DOSE: 20 MG
     Route: 041
     Dates: start: 20071114, end: 20071119
  2. CLOFARABINE [Suspect]
     Indication: STEM CELL TRANSPLANT
     Dosage: TOTAL DAILY DOSE: 76 MG/M2
     Route: 041
     Dates: start: 20071114, end: 20071117

REACTIONS (6)
  - AGITATION [None]
  - CARDIAC FAILURE CONGESTIVE [None]
  - HALLUCINATION, AUDITORY [None]
  - HALLUCINATION, VISUAL [None]
  - HYPERVOLAEMIA [None]
  - NERVOUS SYSTEM DISORDER [None]
